FAERS Safety Report 4496281-9 (Version None)
Quarter: 2004Q3

REPORT INFORMATION
  Report Type: 
  Country: None (occurrence: None)
  Receive Date: 20040921
  Receipt Date: 20040408
  Transmission Date: 20050211
  Serious: Yes (Hospitalization)
  Sender: FDA-Public Use
  Company Number: 163-20785-04040209

PATIENT
  Age: 49 Year
  Sex: Male

DRUGS (16)
  1. THALOMID [Suspect]
     Indication: MULTIPLE MYELOMA
     Dosage: ORAL
     Route: 048
     Dates: start: 20040201
  2. VELCADE [Suspect]
     Indication: MULTIPLE MYELOMA
     Dosage: 1.3 MG/M2
     Dates: start: 20040211
  3. DEXAMETHASONE [Suspect]
     Indication: MULTIPLE MYELOMA
     Dates: start: 20040201
  4. MULTIVITAMIN [Concomitant]
  5. CALCIUM (CALCIUM) [Concomitant]
  6. MAGNESIUM (MAGNESIUM) [Concomitant]
  7. ACYCLOVIR [Concomitant]
  8. FOLIC ACID [Concomitant]
  9. DIGOXIN [Concomitant]
  10. ZOLOFT [Concomitant]
  11. PROTONIX [Concomitant]
  12. ZOCOR [Concomitant]
  13. ALLEGRA [Concomitant]
  14. POLY IRON (IRON) [Concomitant]
  15. METOPROLOL TARTRATE [Concomitant]
  16. TEQUIN [Concomitant]

REACTIONS (7)
  - ATRIAL FIBRILLATION [None]
  - CORONARY ARTERY DISEASE [None]
  - PNEUMONIA [None]
  - SINUSITIS [None]
  - STAPHYLOCOCCAL BACTERAEMIA [None]
  - SYNCOPE [None]
  - THROMBOCYTOPENIA [None]
